FAERS Safety Report 9133314 (Version 4)
Quarter: 2013Q4

REPORT INFORMATION
  Report Type: Spontaneous
  Country: US (occurrence: US)
  Receive Date: 20130301
  Receipt Date: 20131218
  Transmission Date: 20140711
  Serious: Yes (Other)
  Sender: FDA-Public Use
  Company Number: US-PFIZER INC-2013069369

PATIENT
  Age: 59 Year
  Sex: Female
  Weight: 72.56 kg

DRUGS (3)
  1. PRISTIQ [Suspect]
     Indication: DEPRESSION
     Dosage: UNK
     Route: 048
  2. PRISTIQ [Suspect]
     Dosage: 100 MG, 1X/DAY
     Route: 048
  3. KLONOPIN [Concomitant]
     Dosage: UNK, AS NEEDED

REACTIONS (4)
  - Suicidal ideation [Unknown]
  - Tooth impacted [Unknown]
  - Depressed mood [Unknown]
  - Oropharyngeal pain [Not Recovered/Not Resolved]
